FAERS Safety Report 6396326-5 (Version None)
Quarter: 2009Q4

REPORT INFORMATION
  Report Type: 
  Country: None (occurrence: None)
  Receive Date: 20091012
  Receipt Date: 20090930
  Transmission Date: 20100525
  Serious: Yes (Other)
  Sender: FDA-Public Use
  Company Number: GR-RANBAXY-2009RR-25197

PATIENT
  Age: 70 Year
  Sex: Female

DRUGS (2)
  1. CIPROFLOXACIN HYDROCHLORIDE [Suspect]
     Indication: CHOLECYSTITIS
     Dosage: 400 MG, BID
     Route: 042
  2. SOTALOL [Concomitant]
     Dosage: 40 MG, BID
     Route: 048

REACTIONS (1)
  - LONG QT SYNDROME [None]
